FAERS Safety Report 20081497 (Version 1)
Quarter: 2021Q4

REPORT INFORMATION
  Report Type: Spontaneous
  Country: FR (occurrence: FR)
  Receive Date: 20211117
  Receipt Date: 20211117
  Transmission Date: 20220303
  Serious: Yes (Hospitalization, Other)
  Sender: FDA-Public Use
  Company Number: FR-SA-SAC20210827000976

PATIENT
  Age: 47 Year
  Sex: Male
  Weight: 92 kg

DRUGS (16)
  1. ETOPOSIDE [Suspect]
     Active Substance: ETOPOSIDE
     Indication: Hodgkin^s disease
     Dosage: 400 MILLIGRAM, QD, 400 MG, QD
     Route: 041
     Dates: start: 20210622, end: 20210622
  2. ETOPOSIDE [Suspect]
     Active Substance: ETOPOSIDE
     Dosage: 400 MILLIGRAM, QD, 400 MG
     Route: 041
     Dates: start: 20210713, end: 20210713
  3. PREDNISONE [Suspect]
     Active Substance: PREDNISONE
     Indication: Hodgkin^s disease
     Dosage: 80 MILLIGRAM, 80 MG
     Route: 048
     Dates: start: 20210714, end: 20210719
  4. PREDNISONE [Suspect]
     Active Substance: PREDNISONE
     Dosage: 80 MILLIGRAM, QD, 80 MG, QD, PER DAY FOR 11 DAYS
     Route: 048
     Dates: start: 20210623, end: 20210628
  5. METHYLPREDNISOLONE [Suspect]
     Active Substance: METHYLPREDNISOLONE
     Indication: Hodgkin^s disease
     Dosage: 80 MILLIGRAM, QD, 80 MG, QD
     Route: 041
     Dates: start: 20210713, end: 20210713
  6. METHYLPREDNISOLONE [Suspect]
     Active Substance: METHYLPREDNISOLONE
     Dosage: 80 MILLIGRAM, QD, 80 MG, QD
     Route: 041
     Dates: start: 20210622, end: 20210622
  7. DOXORUBICIN [Suspect]
     Active Substance: DOXORUBICIN
     Indication: Hodgkin^s disease
     Dosage: 70 MILLIGRAM, QD, 70 MG, QD
     Route: 041
     Dates: start: 20210622, end: 20210622
  8. DOXORUBICIN [Suspect]
     Active Substance: DOXORUBICIN
     Dosage: 70 MILLIGRAM, 70 MG
     Route: 041
     Dates: start: 20210713, end: 20210713
  9. BLEOMYCIN SULFATE [Suspect]
     Active Substance: BLEOMYCIN SULFATE
     Indication: Hodgkin^s disease
     Dosage: 20 MILLIGRAM, 20 MG ON D8
     Route: 041
     Dates: start: 20210629, end: 20210629
  10. ETOPOSIDE [Suspect]
     Active Substance: ETOPOSIDE
     Indication: Hodgkin^s disease
     Dosage: 800 MILLIGRAM, QD, 800 MG, QD
     Route: 048
     Dates: start: 20210623, end: 20210624
  11. ETOPOSIDE [Suspect]
     Active Substance: ETOPOSIDE
     Dosage: 200 MILLIGRAM, BID, 200 MG, BID, ON D2 AND D3
     Route: 048
     Dates: start: 20210714, end: 20210715
  12. PROCARBAZINE [Suspect]
     Active Substance: PROCARBAZINE
     Indication: Hodgkin^s disease
     Dosage: 200 MILLIGRAM, QD, 200 MG, QD
     Route: 048
     Dates: start: 20210714, end: 20210720
  13. PROCARBAZINE [Suspect]
     Active Substance: PROCARBAZINE
     Dosage: 200 MILLIGRAM, QD, 200 MG, QD, PER DAY FOR 7 DAYS
     Route: 048
     Dates: start: 20210623, end: 20210629
  14. VINCRISTINE SULFATE [Suspect]
     Active Substance: VINCRISTINE SULFATE
     Indication: Hodgkin^s disease
     Dosage: 2 MILLIGRAM, 2 MG ON D8
     Route: 041
     Dates: start: 20210629, end: 20210629
  15. CYCLOPHOSPHAMIDE [Suspect]
     Active Substance: CYCLOPHOSPHAMIDE
     Indication: Hodgkin^s disease
     Dosage: 2500 MILLIGRAM, 2500 MG
     Route: 041
     Dates: start: 20210622, end: 20210622
  16. CYCLOPHOSPHAMIDE [Suspect]
     Active Substance: CYCLOPHOSPHAMIDE
     Dosage: 2500 MILLIGRAM, 2500 MG
     Route: 041
     Dates: start: 20210713, end: 20210713

REACTIONS (2)
  - Myocardial infarction [Recovering/Resolving]
  - Coronary artery thrombosis [Recovering/Resolving]

NARRATIVE: CASE EVENT DATE: 20210719
